FAERS Safety Report 6707216-X (Version None)
Quarter: 2010Q2

REPORT INFORMATION
  Report Type: 
  Country: None (occurrence: None)
  Receive Date: 20100503
  Receipt Date: 20090623
  Transmission Date: 20101027
  Serious: No
  Sender: FDA-Public Use
  Company Number: US-ASTRAZENECA-2009UW17034

PATIENT
  Age: 16422 Day
  Sex: Female

DRUGS (3)
  1. NEXIUM [Suspect]
     Route: 048
     Dates: start: 20081021
  2. ZOMIG [Suspect]
     Route: 048
     Dates: start: 20081021, end: 20090515
  3. BETASERON [Concomitant]

REACTIONS (1)
  - FATIGUE [None]
